FAERS Safety Report 4405025-8 (Version None)
Quarter: 2004Q3

REPORT INFORMATION
  Report Type: 
  Country: None (occurrence: None)
  Receive Date: 20040715
  Receipt Date: 20040629
  Transmission Date: 20050211
  Serious: Yes (Hospitalization)
  Sender: FDA-Public Use
  Company Number: 193849

PATIENT
  Sex: Female

DRUGS (2)
  1. AVONEX [Suspect]
     Indication: MULTIPLE SCLEROSIS
     Dosage: 15 MCG QW IM
     Route: 030
     Dates: start: 20040301
  2. NOVANTRONE ^LEDERLE^ [Concomitant]

REACTIONS (4)
  - DEPRESSION [None]
  - ILEUS [None]
  - INFLUENZA LIKE ILLNESS [None]
  - SMALL INTESTINAL OBSTRUCTION [None]
